FAERS Safety Report 11711468 (Version 1)
Quarter: 2015Q4

REPORT INFORMATION
  Report Type: Spontaneous
  Country: US (occurrence: US)
  Receive Date: 20151104
  Receipt Date: 20151104
  Transmission Date: 20160304
  Serious: No
  Sender: FDA-Public Use
  Company Number: US-ELI_LILLY_AND_COMPANY-US201105007846

PATIENT
  Age: 88 Year
  Sex: Male

DRUGS (1)
  1. FORTEO [Suspect]
     Active Substance: TERIPARATIDE
     Indication: OSTEOPOROSIS
     Dosage: UNK, QD
     Route: 065
     Dates: start: 20110425, end: 20110513

REACTIONS (5)
  - Bone pain [Unknown]
  - Vomiting [Unknown]
  - Malaise [Unknown]
  - Intentional product misuse [Unknown]
  - Nausea [Unknown]

NARRATIVE: CASE EVENT DATE: 20110501
